FAERS Safety Report 22026256 (Version 2)
Quarter: 2023Q1

REPORT INFORMATION
  Report Type: Spontaneous
  Country: US (occurrence: US)
  Receive Date: 20230223
  Receipt Date: 20230301
  Transmission Date: 20230418
  Serious: No
  Sender: FDA-Public Use
  Company Number: US-UNITED THERAPEUTICS-UNT-2023-004346

PATIENT
  Age: 70 Year
  Sex: Female
  Weight: 95.238 kg

DRUGS (4)
  1. REMODULIN [Suspect]
     Active Substance: TREPROSTINIL
     Indication: Pulmonary arterial hypertension
     Dosage: 0.103 ?G/KG, CONTINUING (PHARMACY FILLED WITH 3 ML/CASSETTE AT A REMUNITY PUMP RATE OF 62 MCL/HOUR)
     Route: 058
  2. REMODULIN [Suspect]
     Active Substance: TREPROSTINIL
     Dosage: UNK, CONTINUING
     Route: 058
     Dates: start: 20220912
  3. REMODULIN [Suspect]
     Active Substance: TREPROSTINIL
     Indication: Pulmonary arterial hypertension
     Dosage: 0.103 ?G/KG, (PHARMACY FILLED WITH 3 ML/CASSETTE AT A REMUNITY PUMP RATE OF 62 MCL/HOUR) CONTINUING
     Route: 058
  4. ADCIRCA [Concomitant]
     Active Substance: TADALAFIL
     Indication: Pulmonary arterial hypertension
     Route: 065

REACTIONS (6)
  - Infusion site vesicles [Unknown]
  - Subcutaneous drug absorption impaired [Unknown]
  - Device occlusion [Recovered/Resolved]
  - Infusion site pain [Unknown]
  - Infusion site warmth [Unknown]
  - Infusion site swelling [Unknown]

NARRATIVE: CASE EVENT DATE: 20230213
